FAERS Safety Report 4886336-9 (Version None)
Quarter: 2006Q1

REPORT INFORMATION
  Report Type: 
  Country: None (occurrence: None)
  Receive Date: 20060118
  Receipt Date: 20060118
  Transmission Date: 20060701
  Serious: Yes (Hospitalization)
  Sender: FDA-Public Use
  Company Number: None

PATIENT
  Age: 38 Year
  Sex: Female
  Weight: 47.1 kg

DRUGS (2)
  1. CETUXIMAB   100 MG VIAL   BRISTOL MYERS SQUIBB [Suspect]
     Indication: CERVIX CARCINOMA
     Dosage: 400 MG/M2 X 1,   250 MG/M2 X 5    EVERY WEEK   IV
     Route: 042
     Dates: start: 20050929, end: 20051102
  2. CETUXIMAB   100 MG VIAL   BRISTOL MYERS SQUIBB [Suspect]

REACTIONS (1)
  - INTESTINAL OBSTRUCTION [None]
